FAERS Safety Report 6110189-4 (Version None)
Quarter: 2009Q1

REPORT INFORMATION
  Report Type: 
  Country: None (occurrence: None)
  Receive Date: 20090309
  Receipt Date: 20090309
  Transmission Date: 20090719
  Serious: Yes (Life-Threatening)
  Sender: FDA-Public Use
  Company Number: None

PATIENT
  Age: 59 Year
  Sex: Female
  Weight: 73.9363 kg

DRUGS (1)
  1. CHANTIX [Suspect]
     Indication: SMOKING CESSATION THERAPY
     Dosage: ONE TABLET TWICE PER DAY PO
     Route: 048
     Dates: start: 20090302, end: 20090306

REACTIONS (4)
  - DEPRESSION [None]
  - FLAT AFFECT [None]
  - NAUSEA [None]
  - SUICIDAL IDEATION [None]
